FAERS Safety Report 11880146 (Version 1)
Quarter: 2015Q4

REPORT INFORMATION
  Report Type: Other
  Country: FR (occurrence: FR)
  Receive Date: 20151230
  Receipt Date: 20151230
  Transmission Date: 20160305
  Serious: Yes (Hospitalization, Other)
  Sender: FDA-Public Use
  Company Number: FR-SHIRE-FR201516853

PATIENT
  Sex: Female
  Weight: 56 kg

DRUGS (1)
  1. VPRIV [Suspect]
     Active Substance: VELAGLUCERASE ALFA
     Indication: PRODUCT USED FOR UNKNOWN INDICATION
     Dosage: 9 VIALS (3600 UNITS)D1, 8 VIALS (3200 UNITS) D15, OTHER
     Route: 041
     Dates: start: 2012

REACTIONS (2)
  - Spinal fracture [Unknown]
  - Back pain [Not Recovered/Not Resolved]
